FAERS Safety Report 8001034-0 (Version None)
Quarter: 2011Q4

REPORT INFORMATION
  Report Type: 
  Country: None (occurrence: None)
  Receive Date: 20111222
  Receipt Date: 20110705
  Transmission Date: 20120403
  Serious: No
  Sender: FDA-Public Use
  Company Number: US-GLAXOSMITHKLINE-A0934950A

PATIENT
  Age: 60 Year
  Sex: Female

DRUGS (2)
  1. FLUTICASONE PROPIONATE [Suspect]
     Indication: MULTIPLE ALLERGIES
     Route: 045
     Dates: start: 20070101, end: 20070101
  2. NO CONCURRENT MEDICATION [Concomitant]

REACTIONS (1)
  - EAR DISCOMFORT [None]
